FAERS Safety Report 5094447-0 (Version None)
Quarter: 2006Q3

REPORT INFORMATION
  Report Type: 
  Country: None (occurrence: None)
  Receive Date: 20060828
  Receipt Date: 20060823
  Transmission Date: 20061208
  Serious: Yes (Other)
  Sender: FDA-Public Use
  Company Number: FRWYE774724AUG06

PATIENT
  Age: 63 Year
  Sex: Male

DRUGS (1)
  1. RAPAMUNE [Suspect]
     Indication: NEOPLASM PROPHYLAXIS
     Dosage: ORAL
     Route: 048
     Dates: start: 20050122

REACTIONS (1)
  - PROSTATE CANCER [None]
